FAERS Safety Report 8811047 (Version 3)
Quarter: 2012Q4

REPORT INFORMATION
  Report Type: 
  Country: US (occurrence: US)
  Receive Date: 20120927
  Receipt Date: 20121111
  Transmission Date: 20130627
  Serious: Yes (Other)
  Sender: FDA-Public Use
  Company Number: PHEH2012US018696

PATIENT
  Sex: Male

DRUGS (1)
  1. TOBI [Suspect]
     Indication: RESPIRATORY DISORDER
     Dosage: 300 mg, BID

REACTIONS (4)
  - Leukaemia [Unknown]
  - Bronchiectasis [Unknown]
  - Incorrect dose administered [Unknown]
  - Device malfunction [Unknown]
